FAERS Safety Report 6031366-7 (Version None)
Quarter: 2008Q4

REPORT INFORMATION
  Report Type: 
  Country: None (occurrence: None)
  Receive Date: 20081224
  Receipt Date: 20080804
  Transmission Date: 20090506
  Serious: Yes (Other)
  Sender: FDA-Public Use
  Company Number: FEI2008-1312

PATIENT
  Age: 41 Year
  Sex: Female
  Weight: 65.318 kg

DRUGS (5)
  1. PARAGARD T 380A [Suspect]
     Indication: CONTRACEPTION
     Dosage: INTRA-UTERINE : INTRA-UTERINE
     Route: 015
     Dates: start: 19980110, end: 20080716
  2. PARAGARD T 380A [Suspect]
     Indication: CONTRACEPTION
     Dosage: INTRA-UTERINE : INTRA-UTERINE
     Route: 015
     Dates: start: 20080716
  3. LORATADINE [Concomitant]
  4. MULTIVITAMIN [Concomitant]
  5. GINKO BILOBA (GINGKO BILOBA) [Concomitant]

REACTIONS (1)
  - IUCD COMPLICATION [None]
